FAERS Safety Report 8914875 (Version 1)
Quarter: 2012Q4

REPORT INFORMATION
  Report Type: 
  Country: US (occurrence: US)
  Receive Date: 20121119
  Receipt Date: 20121119
  Transmission Date: 20130627
  Serious: Yes (Hospitalization, Other)
  Sender: FDA-Public Use
  Company Number: US-ASTRAZENECA-2010SE60901

PATIENT
  Age: 58 Year
  Sex: Male
  Weight: 99.8 kg

DRUGS (10)
  1. METOPROLOL [Suspect]
     Route: 048
  2. NEXIUM [Suspect]
     Route: 048
  3. LIPITOR [Concomitant]
  4. PLAVIX [Concomitant]
  5. NIASPIAN [Concomitant]
  6. ASPIRIN [Concomitant]
  7. GLIPIZIDE [Concomitant]
  8. INDAPAMIDE [Concomitant]
  9. HYDRALAZINE [Concomitant]
  10. BENAZEPRIL [Concomitant]

REACTIONS (4)
  - Intracranial aneurysm [Unknown]
  - Balance disorder [Unknown]
  - Memory impairment [Unknown]
  - Malaise [Unknown]
